FAERS Safety Report 8912310 (Version 1)
Quarter: 2012Q4

REPORT INFORMATION
  Report Type: Spontaneous
  Country: US (occurrence: None)
  Receive Date: 20121113
  Receipt Date: 20121113
  Transmission Date: 20130627
  Serious: Yes (Other)
  Sender: FDA-Public Use
  Company Number: US-010030

PATIENT
  Age: 49 Year
  Sex: Female

DRUGS (2)
  1. TRANEXAMIC ACID [Suspect]
     Indication: MENORRHAGIA
     Dosage: (Couple of months - Definitive dates unknown)
  2. TRANEXAMIC ACID [Suspect]
     Indication: ANAEMIA
     Dosage: (Couple of months - Definitive dates unknown)

REACTIONS (1)
  - Myocardial infarction [None]
